FAERS Safety Report 8194136-X (Version None)
Quarter: 2012Q1

REPORT INFORMATION
  Report Type: 
  Country: None (occurrence: None)
  Receive Date: 20120308
  Receipt Date: 20120301
  Transmission Date: 20120608
  Serious: Yes (Other)
  Sender: FDA-Public Use
  Company Number: US-ABBOTT-12P-163-0910452-00

PATIENT
  Sex: Female
  Weight: 73.548 kg

DRUGS (5)
  1. LISINOPRIL [Concomitant]
     Indication: PRODUCT USED FOR UNKNOWN INDICATION
  2. TOPAMAX [Concomitant]
     Indication: PRODUCT USED FOR UNKNOWN INDICATION
  3. ENJUVIA [Concomitant]
     Indication: PRODUCT USED FOR UNKNOWN INDICATION
  4. NIASPAN [Suspect]
     Indication: CARDIAC FAILURE CONGESTIVE
     Dates: start: 20110316
  5. KEPPRA [Concomitant]
     Indication: PRODUCT USED FOR UNKNOWN INDICATION

REACTIONS (9)
  - LIP SWELLING [None]
  - SWELLING FACE [None]
  - EYE SWELLING [None]
  - PALPITATIONS [None]
  - SPINAL FUSION SURGERY [None]
  - OCULAR HYPERAEMIA [None]
  - DYSPNOEA [None]
  - DIZZINESS [None]
  - FLUSHING [None]
